FAERS Safety Report 22184390 (Version 1)
Quarter: 2023Q2

REPORT INFORMATION
  Report Type: Spontaneous
  Country: CN (occurrence: None)
  Receive Date: 20230407
  Receipt Date: 20230407
  Transmission Date: 20230722
  Serious: Yes (Other)
  Sender: FDA-Public Use
  Company Number: CN-ROCHE-3324532

PATIENT

DRUGS (3)
  1. MABTHERA [Suspect]
     Active Substance: RITUXIMAB
     Indication: Mantle cell lymphoma
     Dosage: IT IS ADMINISTERED WEEKLY FOR 4 WEEKS OF THE FIRST CYCLE AND EVERY OTHER CYCLE DURING THE?SUBSEQUENT
     Route: 065
  2. LENALIDOMIDE [Concomitant]
     Active Substance: LENALIDOMIDE
     Indication: Mantle cell lymphoma
     Dosage: ONCE DAILY, ON DAYS 1 TO 21, IN 28-DAY CYCLES, THE DOSE CAN BE INCREASED TO 20 MG IF?TOLERATED; THE
  3. ACALABRUTINIB [Concomitant]
     Active Substance: ACALABRUTINIB
     Indication: Mantle cell lymphoma

REACTIONS (12)
  - Neutropenia [Unknown]
  - Rash [Unknown]
  - Thrombocytopenia [Unknown]
  - Anaemia [Unknown]
  - Fatigue [Unknown]
  - Nausea [Unknown]
  - Vomiting [Unknown]
  - Hyponatraemia [Unknown]
  - Metastasis [Unknown]
  - Renal cell carcinoma [Unknown]
  - Skin cancer [Unknown]
  - Off label use [Unknown]
